FAERS Safety Report 11555297 (Version 2)
Quarter: 2015Q4

REPORT INFORMATION
  Report Type: Spontaneous
  Country: US (occurrence: US)
  Receive Date: 20150925
  Receipt Date: 20151201
  Transmission Date: 20160304
  Serious: No
  Sender: FDA-Public Use
  Company Number: US-CELGENEUS-USA-2015083860

PATIENT
  Age: 58 Year
  Sex: Female

DRUGS (3)
  1. OTEZLA [Suspect]
     Active Substance: APREMILAST
     Indication: PSORIASIS
     Dosage: STARTER KIT 10, 20, 30 MG
     Route: 048
     Dates: start: 20150807
  2. PANTOPRAZOLE [Concomitant]
     Active Substance: PANTOPRAZOLE SODIUM
     Indication: GASTROOESOPHAGEAL REFLUX DISEASE
     Dosage: 10 MILLIGRAM
     Route: 048
  3. OMEGA 3 + VITAMIN D3 [Concomitant]
     Indication: VITAMIN D
     Dosage: 650-200-300MG
     Route: 048

REACTIONS (4)
  - Blood pressure measurement [None]
  - Pollakiuria [Recovering/Resolving]
  - Muscle spasms [Recovering/Resolving]
  - Headache [Recovered/Resolved]

NARRATIVE: CASE EVENT DATE: 20150807
